FAERS Safety Report 16904267 (Version 1)
Quarter: 2019Q4

REPORT INFORMATION
  Report Type: Spontaneous
  Country: FR (occurrence: FR)
  Receive Date: 20191010
  Receipt Date: 20191010
  Transmission Date: 20200122
  Serious: Yes (Other)
  Sender: FDA-Public Use
  Company Number: FR-BAYER-2019-179136

PATIENT
  Age: 80 Year
  Sex: Male

DRUGS (3)
  1. STIVARGA [Suspect]
     Active Substance: REGORAFENIB
     Indication: COLORECTAL CANCER METASTATIC
     Dosage: HALF DOSES (UNSPECIFIED)
     Dates: start: 2019
  2. STIVARGA [Suspect]
     Active Substance: REGORAFENIB
     Indication: COLORECTAL CANCER METASTATIC
     Dosage: UNK
     Dates: start: 201504, end: 201612
  3. TIPIRACIL;TRIFLURIDINE [Concomitant]
     Dosage: UNK
     Dates: start: 201909

REACTIONS (8)
  - Palmar-plantar erythrodysaesthesia syndrome [None]
  - Metastases to lymph nodes [None]
  - Metastases to liver [None]
  - Metastases to lymph nodes [None]
  - Mediastinal disorder [None]
  - Dysphonia [None]
  - Cardiac flutter [None]
  - Tachycardia [None]

NARRATIVE: CASE EVENT DATE: 2019
